FAERS Safety Report 20992192 (Version 1)
Quarter: 2022Q2

REPORT INFORMATION
  Report Type: Spontaneous
  Country: FR (occurrence: FR)
  Receive Date: 20220622
  Receipt Date: 20220622
  Transmission Date: 20220721
  Serious: Yes (Death, Hospitalization)
  Sender: FDA-Public Use
  Company Number: None

PATIENT
  Age: 65 Year
  Sex: Female
  Weight: 70 kg

DRUGS (4)
  1. MVASI [Suspect]
     Active Substance: BEVACIZUMAB-AWWB
     Indication: Lung carcinoma cell type unspecified stage IV
     Dosage: 7.5 MILLIGRAM/KILOGRAM, QMO
     Route: 042
     Dates: start: 20220118, end: 20220506
  2. ALIMTA [Suspect]
     Active Substance: PEMETREXED DISODIUM
     Indication: Lung carcinoma cell type unspecified stage IV
     Route: 042
     Dates: start: 20220118, end: 20220506
  3. PREDNISONE [Suspect]
     Active Substance: PREDNISONE
     Indication: Brain oedema
     Route: 048
     Dates: start: 20220107, end: 20220519
  4. KEPPRA [Concomitant]
     Active Substance: LEVETIRACETAM
     Indication: Epilepsy
     Route: 048

REACTIONS (1)
  - Intestinal perforation [Fatal]

NARRATIVE: CASE EVENT DATE: 20220509
